FAERS Safety Report 21408249 (Version 1)
Quarter: 2022Q4

REPORT INFORMATION
  Report Type: Spontaneous
  Country: CN (occurrence: CN)
  Receive Date: 20221004
  Receipt Date: 20221004
  Transmission Date: 20230113
  Serious: Yes (Life-Threatening, Hospitalization)
  Sender: FDA-Public Use
  Company Number: CN-ELI_LILLY_AND_COMPANY-CN202209013849

PATIENT
  Sex: Female
  Weight: 46.5 kg

DRUGS (2)
  1. ABEMACICLIB [Suspect]
     Active Substance: ABEMACICLIB
     Indication: Endocrine disorder
     Dosage: 100 MG, BID
     Route: 048
     Dates: start: 20220803, end: 20220923
  2. EXEMESTANE [Suspect]
     Active Substance: EXEMESTANE
     Indication: Intraductal proliferative breast lesion
     Dosage: 25 MG, DAILY
     Route: 048
     Dates: start: 20220803, end: 20220923

REACTIONS (1)
  - Myelosuppression [Unknown]
